FAERS Safety Report 6283914-X (Version None)
Quarter: 2009Q3

REPORT INFORMATION
  Report Type: 
  Country: None (occurrence: None)
  Receive Date: 20090722
  Receipt Date: 20090722
  Transmission Date: 20100115
  Serious: Yes (Life-Threatening)
  Sender: FDA-Public Use
  Company Number: None

PATIENT
  Sex: Male
  Weight: 70.3075 kg

DRUGS (1)
  1. DIGOXIN [Suspect]
     Indication: CARDIAC FIBRILLATION
     Dosage: 125 MCG. 1 TABLET DAILY PO
     Route: 048
     Dates: start: 20001213, end: 20090509

REACTIONS (6)
  - HEART RATE IRREGULAR [None]
  - INCORRECT DOSE ADMINISTERED [None]
  - NOCTURIA [None]
  - ROAD TRAFFIC ACCIDENT [None]
  - VISION BLURRED [None]
  - VISUAL FIELD DEFECT [None]
